FAERS Safety Report 9563044 (Version 2)
Quarter: 2013Q3

REPORT INFORMATION
  Report Type: Spontaneous
  Country: BR (occurrence: BR)
  Receive Date: 20130927
  Receipt Date: 20130927
  Transmission Date: 20140515
  Serious: Yes (Other)
  Sender: FDA-Public Use
  Company Number: CHNY2013BR002030

PATIENT
  Age: 50 Year
  Sex: Male

DRUGS (8)
  1. NICOTINE [Suspect]
     Indication: SMOKING CESSATION THERAPY
     Dosage: 21 MG, UNK
     Route: 062
  2. NICOTINE [Suspect]
     Dosage: 14 MG, UNK
     Route: 062
  3. BUPROPION [Suspect]
     Indication: SMOKING CESSATION THERAPY
     Dosage: 300 MG, QD
  4. BUPROPION [Suspect]
     Dosage: 150 MG, QD
  5. LOSARTAN [Concomitant]
     Dosage: 50 MG, QD
  6. SIMVASTATIN [Concomitant]
     Dosage: 10 MG, QD
  7. POTASSIUM CITRATE [Concomitant]
     Dosage: 540 MG, QD
  8. CLOXAZOLAM [Concomitant]
     Dosage: 1 MG, PRN

REACTIONS (7)
  - Essential tremor [Recovering/Resolving]
  - Condition aggravated [Recovering/Resolving]
  - Postural tremor [Recovering/Resolving]
  - Depression [Recovering/Resolving]
  - Self esteem decreased [Recovering/Resolving]
  - Insomnia [Recovering/Resolving]
  - Nicotine dependence [Recovering/Resolving]
